FAERS Safety Report 7114688-8 (Version None)
Quarter: 2010Q4

REPORT INFORMATION
  Report Type: 
  Country: None (occurrence: None)
  Receive Date: 20101122
  Receipt Date: 20101109
  Transmission Date: 20110411
  Serious: Yes (Hospitalization)
  Sender: FDA-Public Use
  Company Number: AT-BIOGENIDEC-2010BI039231

PATIENT
  Age: 46 Year
  Sex: Female
  Weight: 72 kg

DRUGS (1)
  1. AVONEX [Suspect]
     Indication: RELAPSING-REMITTING MULTIPLE SCLEROSIS
     Route: 030
     Dates: start: 20070201

REACTIONS (4)
  - CARDIAC FAILURE [None]
  - MULTIPLE SCLEROSIS RELAPSE [None]
  - PNEUMONIA [None]
  - VIRAL INFECTION [None]
